FAERS Safety Report 12395651 (Version 5)
Quarter: 2021Q3

REPORT INFORMATION
  Report Type: Spontaneous
  Country: FR (occurrence: FR)
  Receive Date: 20160523
  Receipt Date: 20210913
  Transmission Date: 20211014
  Serious: Yes (Hospitalization, Congenital Anomaly, Other)
  Sender: FDA-Public Use
  Company Number: FR-ABBVIE-16P-056-1635111-00

PATIENT
  Sex: Female

DRUGS (4)
  1. DEPAKINE CHRONO [Suspect]
     Active Substance: VALPROATE SODIUM
     Route: 064
  2. DEPAKINE CHRONO [Suspect]
     Active Substance: VALPROATE SODIUM
     Route: 064
  3. SPECIAFOLDINE [Concomitant]
     Active Substance: FOLIC ACID
     Indication: MATERNAL EXPOSURE TIMING UNSPECIFIED
     Route: 064
  4. DEPAKINE CHRONO [Suspect]
     Active Substance: VALPROATE SODIUM
     Indication: MATERNAL EXPOSURE TIMING UNSPECIFIED
     Route: 064

REACTIONS (41)
  - Psychomotor retardation [Not Recovered/Not Resolved]
  - Conjunctivitis [Unknown]
  - Epilepsy [Unknown]
  - Simple partial seizures [Unknown]
  - Hypoacusis [Not Recovered/Not Resolved]
  - Ear disorder [Not Recovered/Not Resolved]
  - Abnormal behaviour [Not Recovered/Not Resolved]
  - Tremor [Unknown]
  - Skin exfoliation [Unknown]
  - Otorrhoea [Not Recovered/Not Resolved]
  - Arthralgia [Unknown]
  - Nasal disorder [Not Recovered/Not Resolved]
  - Dysgraphia [Not Recovered/Not Resolved]
  - Bundle branch block right [Unknown]
  - Elbow deformity [Not Recovered/Not Resolved]
  - Gastrooesophageal reflux disease [Recovered/Resolved]
  - Communication disorder [Not Recovered/Not Resolved]
  - Malaise [Unknown]
  - Foetal anticonvulsant syndrome [Unknown]
  - Epilepsy [Unknown]
  - Talipes [Unknown]
  - Foetal exposure during pregnancy [Unknown]
  - Toe walking [Not Recovered/Not Resolved]
  - Speech disorder [Not Recovered/Not Resolved]
  - Urticaria [Unknown]
  - Tonsillar hypertrophy [Not Recovered/Not Resolved]
  - Scoliosis [Unknown]
  - Knee deformity [Not Recovered/Not Resolved]
  - Myopia [Not Recovered/Not Resolved]
  - Dyspnoea exertional [Unknown]
  - Echolalia [Unknown]
  - Clinodactyly [Unknown]
  - Tympanic membrane perforation [Not Recovered/Not Resolved]
  - Ear infection [Unknown]
  - Ear pain [Unknown]
  - Micturition urgency [Unknown]
  - Dysmorphism [Not Recovered/Not Resolved]
  - Pyrexia [Not Recovered/Not Resolved]
  - Pharyngeal disorder [Not Recovered/Not Resolved]
  - Foot deformity [Unknown]
  - Mixed deafness [Unknown]

NARRATIVE: CASE EVENT DATE: 19990524
